FAERS Safety Report 20966221 (Version 2)
Quarter: 2022Q3

REPORT INFORMATION
  Report Type: Report from Study
  Country: CA (occurrence: CA)
  Receive Date: 20220616
  Receipt Date: 20220714
  Transmission Date: 20221027
  Serious: Yes (Hospitalization)
  Sender: FDA-Public Use
  Company Number: CA-BRISTOL-MYERS SQUIBB COMPANY-BMS-2022-017222

PATIENT
  Age: 74 Year
  Sex: Female
  Weight: 45.00 kg

DRUGS (2)
  1. ORENCIA [Suspect]
     Active Substance: ABATACEPT
     Indication: Rheumatoid arthritis
     Route: 042
     Dates: start: 20140207
  2. ORENCIA [Suspect]
     Active Substance: ABATACEPT
     Dosage: 500 MILLIGRAM, Q4WK
     Route: 042
     Dates: start: 20140207

REACTIONS (2)
  - Oxygen saturation decreased [Recovered/Resolved]
  - Suspected COVID-19 [Unknown]

NARRATIVE: CASE EVENT DATE: 20220201
